FAERS Safety Report 7008128-7 (Version None)
Quarter: 2010Q3

REPORT INFORMATION
  Report Type: 
  Country: None (occurrence: None)
  Receive Date: 20100922
  Receipt Date: 20100914
  Transmission Date: 20110219
  Serious: Yes (Hospitalization)
  Sender: FDA-Public Use
  Company Number: US-US-EMD SERONO, INC.-7011819

PATIENT
  Sex: Female

DRUGS (1)
  1. REBIF [Suspect]
     Indication: MULTIPLE SCLEROSIS
     Route: 058
     Dates: start: 20080919

REACTIONS (5)
  - ANXIETY [None]
  - DEPRESSION [None]
  - DIARRHOEA [None]
  - MENSTRUAL DISORDER [None]
  - VOMITING [None]
